FAERS Safety Report 8231744-1 (Version None)
Quarter: 2012Q1

REPORT INFORMATION
  Report Type: 
  Country: None (occurrence: None)
  Receive Date: 20120323
  Receipt Date: 20120314
  Transmission Date: 20120608
  Serious: Yes (Hospitalization, Other)
  Sender: FDA-Public Use
  Company Number: US-BRISTOL-MYERS SQUIBB COMPANY-16455149

PATIENT
  Age: 65 Year
  Sex: Male

DRUGS (1)
  1. ERBITUX [Suspect]
     Indication: NEOPLASM MALIGNANT
     Dosage: INTERRUPTED TREATMENT FOR A WEEK,RESTARTED FOR TWO WEEKS,STOPPED FOR ANOTHER 2 WEEKS,RESD 6 WKS

REACTIONS (6)
  - RASH GENERALISED [None]
  - DIARRHOEA HAEMORRHAGIC [None]
  - METASTASES TO CENTRAL NERVOUS SYSTEM [None]
  - PAIN [None]
  - PNEUMONIA [None]
  - PNEUMOTHORAX [None]
